FAERS Safety Report 7706353-0 (Version None)
Quarter: 2011Q3

REPORT INFORMATION
  Report Type: 
  Country: None (occurrence: None)
  Receive Date: 20110802
  Receipt Date: 20101025
  Transmission Date: 20111222
  Serious: Yes (Other)
  Sender: FDA-Public Use
  Company Number: 734129

PATIENT
  Age: 35 Year
  Sex: Male

DRUGS (4)
  1. FLUOROURACIL [Suspect]
     Indication: COLON CANCER
  2. LEUCOVORIN CALCIUM [Suspect]
     Indication: COLON CANCER
  3. ELOXATIN [Suspect]
     Indication: COLON CANCER
     Dosage: 150 MG, EVERY OTHER WEEK, 150 MG EVERY OTHER WEEK, INTRAVENOUS (NOT OTHERWISE SPECIFIED)
     Route: 042
     Dates: start: 20100928, end: 20100928
  4. ELOXATIN [Suspect]
     Indication: COLON CANCER
     Dosage: 150 MG, EVERY OTHER WEEK, 150 MG EVERY OTHER WEEK, INTRAVENOUS (NOT OTHERWISE SPECIFIED)
     Route: 042
     Dates: start: 20100915, end: 20100915

REACTIONS (1)
  - HYPERSENSITIVITY [None]
